FAERS Safety Report 6239864-8 (Version None)
Quarter: 2009Q2

REPORT INFORMATION
  Report Type: 
  Country: None (occurrence: None)
  Receive Date: 20090618
  Receipt Date: 20090618
  Transmission Date: 20091009
  Serious: Yes (Other)
  Sender: FDA-Public Use
  Company Number: None

PATIENT
  Age: 42 Year
  Sex: Female
  Weight: 64.4108 kg

DRUGS (4)
  1. ZICAM EXTREME CONGESTION RELIEF 0.05% OXYMETAZOLINE HYDROCHLORIDE ZICA [Suspect]
     Indication: MULTIPLE ALLERGIES
     Dosage: TWICE PER NOSTRIL 2 -3 TIMES/DAY NASAL
     Route: 045
     Dates: start: 20070101
  2. ZICAM EXTREME CONGESTION RELIEF 0.05% OXYMETAZOLINE HYDROCHLORIDE ZICA [Suspect]
     Indication: NASOPHARYNGITIS
     Dosage: TWICE PER NOSTRIL 2 -3 TIMES/DAY NASAL
     Route: 045
     Dates: start: 20070101
  3. ZICAM EXTREME CONGESTION RELIEF 0.05% OXYMETAZOLINE HYDROCHLORIDE ZICA [Suspect]
     Indication: SINUS DISORDER
     Dosage: TWICE PER NOSTRIL 2 -3 TIMES/DAY NASAL
     Route: 045
     Dates: start: 20070101
  4. ZICAM COLD REMEDY ORAL MIST ZINCUM ACETICUM 2X/ZINCUM ZICAM LLC/MATRIX [Suspect]
     Indication: NASOPHARYNGITIS
     Dosage: FOUR TIMES IN MOUTH 3 HR INTERVALS PO
     Route: 048
     Dates: start: 20080101

REACTIONS (4)
  - AGEUSIA [None]
  - ANOREXIA [None]
  - DYSGEUSIA [None]
  - HYPOAESTHESIA ORAL [None]
